FAERS Safety Report 7032212-5 (Version None)
Quarter: 2010Q4

REPORT INFORMATION
  Report Type: 
  Country: None (occurrence: None)
  Receive Date: 20101007
  Receipt Date: 20101005
  Transmission Date: 20110411
  Serious: Yes (Life-Threatening)
  Sender: FDA-Public Use
  Company Number: IT-BRISTOL-MYERS SQUIBB COMPANY-15320112

PATIENT
  Age: 79 Year
  Sex: Female

DRUGS (6)
  1. COUMADIN [Suspect]
     Indication: ATRIAL FIBRILLATION
     Dosage: DRUG HAS NOT BEEN SUSPENDED
     Dates: start: 20080103, end: 20100923
  2. LANSOPRAZOLE [Concomitant]
     Dosage: LANSOPRAZOLE 15MG ORAL CAPS
     Route: 048
  3. NAPRILENE [Concomitant]
     Route: 048
  4. METOPROLOL TARTRATE [Concomitant]
     Route: 048
  5. LASIX [Concomitant]
     Route: 048
  6. CARDIOASPIRIN [Concomitant]
     Dosage: CARDIOASPIRIN 100MG GASTRORESITANT ORAL TABS
     Route: 048

REACTIONS (1)
  - ACUTE MYOCARDIAL INFARCTION [None]
